FAERS Safety Report 8005005-X (Version None)
Quarter: 2011Q4

REPORT INFORMATION
  Report Type: 
  Country: None (occurrence: None)
  Receive Date: 20111223
  Receipt Date: 20111216
  Transmission Date: 20120403
  Serious: Yes (Other)
  Sender: FDA-Public Use
  Company Number: DE-JNJFOC-20111208701

PATIENT
  Age: 37 Year
  Sex: Female

DRUGS (4)
  1. ANTI-DEPRESSANT NOS [Concomitant]
     Route: 048
  2. RISPERDAL [Suspect]
     Route: 048
  3. RISPERDAL [Suspect]
     Indication: SCHIZOPHRENIA
     Route: 048
  4. LITHIUM [Concomitant]
     Route: 048

REACTIONS (3)
  - MASTITIS [None]
  - BENIGN BREAST NEOPLASM [None]
  - HYPERPROLACTINAEMIA [None]
